FAERS Safety Report 6222661-7 (Version None)
Quarter: 2009Q2

REPORT INFORMATION
  Report Type: 
  Country: None (occurrence: None)
  Receive Date: 20090611
  Receipt Date: 20090528
  Transmission Date: 20091009
  Serious: Yes (Death)
  Sender: FDA-Public Use
  Company Number: US-ELI_LILLY_AND_COMPANY-US200905006000

PATIENT
  Sex: Female

DRUGS (2)
  1. SYMBYAX [Suspect]
     Dosage: 1 D/F, UNK
     Dates: start: 20060101, end: 20070101
  2. ANTIPSYCHOTICS [Concomitant]
     Dosage: UNK, UNK
     Dates: start: 20070101

REACTIONS (2)
  - COMPLETED SUICIDE [None]
  - WEIGHT INCREASED [None]
